FAERS Safety Report 4865059-6 (Version None)
Quarter: 2005Q4

REPORT INFORMATION
  Report Type: 
  Country: None (occurrence: None)
  Receive Date: 20051219
  Receipt Date: 20051206
  Transmission Date: 20060501
  Serious: Yes (Death, Other)
  Sender: FDA-Public Use
  Company Number: 2005159759

PATIENT

DRUGS (1)
  1. SULPERAZON (SULBACTAM, CEFOPERAZONE) [Suspect]
     Indication: BILIARY TRACT INFECTION
     Dosage: 6 GRAM (3 GRAM, 2 IN 1 D) INTRAVENOUS
     Route: 042
     Dates: start: 20051001, end: 20051001

REACTIONS (3)
  - COAGULATION TIME PROLONGED [None]
  - HAEMATOCHEZIA [None]
  - MULTI-ORGAN FAILURE [None]
